FAERS Safety Report 5653605-4 (Version None)
Quarter: 2008Q1

REPORT INFORMATION
  Report Type: 
  Country: None (occurrence: None)
  Receive Date: 20080306
  Receipt Date: 20080227
  Transmission Date: 20080703
  Serious: Yes (Other)
  Sender: FDA-Public Use
  Company Number: JP-ROCHE-548453

PATIENT
  Age: 5 Year
  Sex: Female
  Weight: 17 kg

DRUGS (5)
  1. TAMIFLU [Suspect]
     Route: 048
     Dates: start: 20080208, end: 20080208
  2. FLOMOX [Concomitant]
     Dosage: FORM: FINE GRANULE.
     Route: 048
     Dates: start: 20080208, end: 20080212
  3. HUSTAZOL [Concomitant]
     Route: 048
     Dates: start: 20080208, end: 20080219
  4. MUCODYNE [Concomitant]
     Route: 048
     Dates: start: 20080208, end: 20080215
  5. TELGIN G [Concomitant]
     Route: 048
     Dates: start: 20080208, end: 20080219

REACTIONS (1)
  - ABNORMAL BEHAVIOUR [None]
